FAERS Safety Report 22085105 (Version 1)
Quarter: 2023Q1

REPORT INFORMATION
  Report Type: Report from Study
  Country: GB (occurrence: GB)
  Receive Date: 20230310
  Receipt Date: 20230310
  Transmission Date: 20230418
  Serious: Yes (Other)
  Sender: FDA-Public Use
  Company Number: GB-TEVA-2023-GB-2864571

PATIENT
  Sex: Female

DRUGS (1)
  1. AJOVY [Suspect]
     Active Substance: FREMANEZUMAB-VFRM
     Indication: Headache
     Dosage: FORM STRENGTH: 225MG/1.5ML, DOSE: 225MILLIGRAM EVERY 4 WEEKS
     Route: 065

REACTIONS (2)
  - Hypertension [Recovered/Resolved]
  - Inappropriate schedule of product administration [Unknown]
